FAERS Safety Report 9877226 (Version 2)
Quarter: 2014Q1

REPORT INFORMATION
  Report Type: Report from Study
  Country: US (occurrence: US)
  Receive Date: 20140206
  Receipt Date: 20140211
  Transmission Date: 20141002
  Serious: Yes (Death)
  Sender: FDA-Public Use
  Company Number: US-CELGENEUS-163-21880-14014123

PATIENT
  Age: 70 Year
  Sex: Male
  Weight: 72.41 kg

DRUGS (3)
  1. REVLIMID [Suspect]
     Indication: B-CELL LYMPHOMA
     Route: 048
     Dates: start: 20131217
  2. EVEROLIMUS [Suspect]
     Indication: B-CELL LYMPHOMA
     Route: 065
  3. RED BLOOD CELLS [Concomitant]
     Indication: PRODUCT USED FOR UNKNOWN INDICATION
     Route: 041
     Dates: start: 20140106, end: 20140106

REACTIONS (1)
  - B-cell lymphoma [Fatal]
